FAERS Safety Report 6063101-0 (Version None)
Quarter: 2009Q1

REPORT INFORMATION
  Report Type: 
  Country: None (occurrence: None)
  Receive Date: 20090203
  Receipt Date: 20090130
  Transmission Date: 20090719
  Serious: Yes (Hospitalization)
  Sender: FDA-Public Use
  Company Number: PHHY2009CZ03526

PATIENT
  Sex: Male
  Weight: 75 kg

DRUGS (2)
  1. SANDOSTATIN LAR SAS02+VIAL [Suspect]
     Indication: CARCINOID SYNDROME
     Dosage: UNK
     Route: 030
     Dates: start: 20080917
  2. ZOMETA [Concomitant]
     Indication: METASTASES TO BONE
     Dosage: 4 MG
     Dates: start: 20070530

REACTIONS (3)
  - FALL [None]
  - RETINAL DETACHMENT [None]
  - RETINAL OPERATION [None]
